FAERS Safety Report 7775425-7 (Version None)
Quarter: 2011Q3

REPORT INFORMATION
  Report Type: 
  Country: None (occurrence: None)
  Receive Date: 20110923
  Receipt Date: 20110920
  Transmission Date: 20111222
  Serious: Yes (Death, Other)
  Sender: FDA-Public Use
  Company Number: PHHY2011CN84131

PATIENT
  Sex: Female

DRUGS (1)
  1. SEBIVO [Suspect]

REACTIONS (2)
  - OESOPHAGEAL CARCINOMA [None]
  - DEATH [None]
